FAERS Safety Report 13319100 (Version 1)
Quarter: 2017Q1

REPORT INFORMATION
  Report Type: Spontaneous
  Country: TR (occurrence: TR)
  Receive Date: 20170310
  Receipt Date: 20170310
  Transmission Date: 20170428
  Serious: Yes (Hospitalization)
  Sender: FDA-Public Use
  Company Number: TR-SHENZHEN TECHDOW PHARMACEUTICAL CO. LTD-TR-2017TEC0000011

PATIENT
  Age: 1 Year
  Sex: Male
  Weight: 7 kg

DRUGS (2)
  1. HEPARIN SODIUM INJECTION USP, PRESERVATIVE FREE [Suspect]
     Active Substance: HEPARIN SODIUM
     Indication: ANTICOAGULANT THERAPY
     Dosage: 70 IU/KG, (70 UNITS/KG INTRAVENOUS BOLUS)
     Route: 042
  2. HEPARIN SODIUM INJECTION USP, PRESERVATIVE FREE [Suspect]
     Active Substance: HEPARIN SODIUM
     Dosage: 20 IU/KG, PER HOUR CONTINUOUS INFUSION
     Route: 042

REACTIONS (2)
  - Hepatic function abnormal [Recovered/Resolved]
  - Heparin-induced thrombocytopenia [Recovered/Resolved]
